FAERS Safety Report 4312866-4 (Version None)
Quarter: 2004Q1

REPORT INFORMATION
  Report Type: 
  Country: None (occurrence: None)
  Receive Date: 20040304
  Receipt Date: 20040223
  Transmission Date: 20041129
  Serious: Yes (Hospitalization)
  Sender: FDA-Public Use
  Company Number: 04P-087-0246148-00

PATIENT
  Age: 79 Year
  Sex: Male

DRUGS (4)
  1. TRICOR [Suspect]
     Indication: HYPERLIPIDAEMIA
     Dosage: ORAL
     Route: 048
     Dates: start: 20030601, end: 20030807
  2. AMLODIPINE BESYLATE [Concomitant]
  3. GLYBURIDE [Concomitant]
  4. . [Concomitant]

REACTIONS (3)
  - LIVER ABSCESS [None]
  - PYREXIA [None]
  - RHABDOMYOLYSIS [None]
